FAERS Safety Report 10158856 (Version 1)
Quarter: 2014Q2

REPORT INFORMATION
  Report Type: Spontaneous
  Country: US (occurrence: US)
  Receive Date: 20140508
  Receipt Date: 20140508
  Transmission Date: 20141212
  Serious: No
  Sender: FDA-Public Use
  Company Number: US-BIOGENIDEC-2014BI039067

PATIENT
  Age: 51 Year
  Sex: Female

DRUGS (12)
  1. TECFIDERA [Suspect]
     Indication: MULTIPLE SCLEROSIS
     Route: 048
     Dates: start: 20130717
  2. MICROGESTIN [Concomitant]
  3. TRICOR [Concomitant]
  4. MODAFINIL [Concomitant]
  5. LEXAPRO [Concomitant]
  6. TIZANIDINE [Concomitant]
  7. FENOFIBRATE [Concomitant]
  8. VALIUM [Concomitant]
  9. PREDNISONE [Concomitant]
  10. VIVELLE DOT [Concomitant]
  11. LIOTHYRONINE SODIUM [Concomitant]
  12. AMPYRA [Concomitant]

REACTIONS (3)
  - Treatment failure [Unknown]
  - Flushing [Unknown]
  - Multiple sclerosis relapse [Unknown]
